FAERS Safety Report 5934265-1 (Version None)
Quarter: 2008Q4

REPORT INFORMATION
  Report Type: 
  Country: None (occurrence: None)
  Receive Date: 20081029
  Receipt Date: 20081021
  Transmission Date: 20090506
  Serious: Yes (Other)
  Sender: FDA-Public Use
  Company Number: DE-ABBOTT-08P-062-0483275-00

PATIENT
  Sex: Female

DRUGS (2)
  1. HUMIRA [Suspect]
     Indication: PSORIATIC ARTHROPATHY
     Route: 058
     Dates: start: 20060101, end: 20080924
  2. CORTISONE [Concomitant]
     Indication: PSORIATIC ARTHROPATHY

REACTIONS (1)
  - CERVIX CARCINOMA [None]
